FAERS Safety Report 8387612-8 (Version None)
Quarter: 2012Q2

REPORT INFORMATION
  Report Type: 
  Country: None (occurrence: None)
  Receive Date: 20120525
  Receipt Date: 20120516
  Transmission Date: 20120825
  Serious: Yes (Hospitalization)
  Sender: FDA-Public Use
  Company Number: US-DX529-2012DX000078

PATIENT
  Age: 30 Year
  Sex: Female
  Weight: 103.5 kg

DRUGS (11)
  1. COREG [Concomitant]
     Indication: PRODUCT USED FOR UNKNOWN INDICATION
  2. KALBITOR [Suspect]
     Dates: start: 20120127, end: 20120127
  3. LEXAPRO [Concomitant]
     Indication: PRODUCT USED FOR UNKNOWN INDICATION
  4. CINRYZE [Suspect]
     Route: 042
     Dates: start: 20120101
  5. INSULIN [Concomitant]
     Indication: DIABETES MELLITUS
  6. ALLERGY MEDICATION [Concomitant]
     Indication: PRODUCT USED FOR UNKNOWN INDICATION
     Dates: start: 20120320, end: 20120320
  7. KALBITOR [Suspect]
     Indication: HEREDITARY ANGIOEDEMA
     Dates: start: 20120126, end: 20120126
  8. KALBITOR [Suspect]
     Dates: start: 20120201, end: 20120201
  9. CINRYZE [Suspect]
     Indication: HEREDITARY ANGIOEDEMA
     Route: 042
     Dates: start: 20120210, end: 20120318
  10. CINRYZE [Suspect]
     Route: 042
     Dates: start: 20120321, end: 20120321
  11. KALBITOR [Suspect]
     Dates: start: 20120320, end: 20120320

REACTIONS (4)
  - DRUG INTERACTION [None]
  - PULMONARY EMBOLISM [None]
  - DEVICE RELATED SEPSIS [None]
  - HEREDITARY ANGIOEDEMA [None]
